FAERS Safety Report 14557965 (Version 2)
Quarter: 2018Q1

REPORT INFORMATION
  Report Type: Report from Study
  Country: None (occurrence: FI)
  Receive Date: 20180221
  Receipt Date: 20180228
  Transmission Date: 20180509
  Serious: Yes (Death)
  Sender: FDA-Public Use
  Company Number: FI-ABBVIE-18K-055-2263359-00

PATIENT
  Sex: Male

DRUGS (1)
  1. DUODOPA [Suspect]
     Active Substance: CARBIDOPA\LEVODOPA
     Indication: PARKINSON^S DISEASE
     Dosage: PEG TUBE CHANGED IN APRIL 2016(FREKA 20FR)
     Route: 050
     Dates: start: 2010

REACTIONS (1)
  - Pneumonia [Fatal]
